FAERS Safety Report 7208127-6 (Version None)
Quarter: 2010Q4

REPORT INFORMATION
  Report Type: 
  Country: None (occurrence: None)
  Receive Date: 20101126
  Receipt Date: 20100907
  Transmission Date: 20110411
  Serious: Yes (Hospitalization)
  Sender: FDA-Public Use
  Company Number: 314362

PATIENT
  Age: 68 Year
  Sex: Female
  Weight: 85.7 kg

DRUGS (1)
  1. VICTOZA [Suspect]
     Indication: DIABETES MELLITUS
     Dosage: 0.6 MG, QD, SUBCUTANEOUS
     Route: 058
     Dates: start: 20100830, end: 20100903

REACTIONS (2)
  - BLOOD TRIGLYCERIDES DECREASED [None]
  - PANCREATITIS ACUTE [None]
